FAERS Safety Report 5589750-1 (Version None)
Quarter: 2008Q1

REPORT INFORMATION
  Report Type: 
  Country: None (occurrence: None)
  Receive Date: 20080114
  Receipt Date: 20080104
  Transmission Date: 20080703
  Serious: Yes (Other)
  Sender: FDA-Public Use
  Company Number: US-JNJFOC-20080102357

PATIENT
  Age: 48 Year
  Sex: Female
  Weight: 65.77 kg

DRUGS (3)
  1. ULTRAM ER [Suspect]
     Indication: PAIN
     Route: 048
  2. LEVOTHYROXINE SODIUM [Concomitant]
     Indication: HYPOTHYROIDISM
     Route: 048
  3. NAPROXEN [Concomitant]
     Indication: PAIN
     Route: 048

REACTIONS (4)
  - ANXIETY [None]
  - BLOOD CALCIUM INCREASED [None]
  - BLOOD POTASSIUM INCREASED [None]
  - HYPOTHYROIDISM [None]
